FAERS Safety Report 10025046 (Version 1)
Quarter: 2014Q1

REPORT INFORMATION
  Report Type: Spontaneous
  Country: US (occurrence: None)
  Receive Date: 20140314
  Receipt Date: 20140314
  Transmission Date: 20141002
  Serious: Yes (Hospitalization)
  Sender: FDA-Public Use
  Company Number: 2014-US-002703

PATIENT
  Age: 42 Year
  Sex: Female

DRUGS (1)
  1. XYREM (SODIUM OXYBATE) ORAL SOLUTION, 500MG/ML [Suspect]
     Indication: SLEEP DISORDER
     Route: 048
     Dates: start: 200905

REACTIONS (11)
  - Gastrointestinal infection [None]
  - Lactose intolerance [None]
  - Thinking abnormal [None]
  - Insomnia [None]
  - Asthenia [None]
  - Aphagia [None]
  - Vomiting [None]
  - Tremor [None]
  - Nervousness [None]
  - Intentional drug misuse [None]
  - Off label use [None]
